FAERS Safety Report 6207590-7 (Version None)
Quarter: 2009Q2

REPORT INFORMATION
  Report Type: 
  Country: None (occurrence: None)
  Receive Date: 20090528
  Receipt Date: 20090520
  Transmission Date: 20091009
  Serious: Yes (Other)
  Sender: FDA-Public Use
  Company Number: US-JNJCH-2009014351

PATIENT
  Age: 12 Year
  Sex: Male
  Weight: 45.4 kg

DRUGS (1)
  1. PURELL ORIGINAL [Suspect]
     Indication: ACCIDENTAL EXPOSURE
     Dosage: TEXT:1 ^DAB^ ONCE
     Route: 047
     Dates: start: 20090520, end: 20090520

REACTIONS (2)
  - ACCIDENTAL EXPOSURE [None]
  - VISION BLURRED [None]
